FAERS Safety Report 4595654-3 (Version None)
Quarter: 2005Q1

REPORT INFORMATION
  Report Type: 
  Country: None (occurrence: None)
  Receive Date: 20050224
  Receipt Date: 20050219
  Transmission Date: 20050727
  Serious: Yes (Death)
  Sender: FDA-Public Use
  Company Number: TCI2005A01281

PATIENT
  Age: 61 Year

DRUGS (1)
  1. ACTOS [Suspect]
     Route: 048

REACTIONS (1)
  - RENAL FAILURE [None]
